FAERS Safety Report 4887979-9 (Version None)
Quarter: 2006Q1

REPORT INFORMATION
  Report Type: 
  Country: None (occurrence: None)
  Receive Date: 20060119
  Receipt Date: 20060110
  Transmission Date: 20060701
  Serious: Yes (Other)
  Sender: FDA-Public Use
  Company Number: A-US2005-10892

PATIENT
  Age: 46 Year
  Sex: Female
  Weight: 68.5 kg

DRUGS (9)
  1. TRACLEER [Suspect]
     Indication: PULMONARY HYPERTENSION
     Dosage: SEE IMAGE
     Route: 048
     Dates: end: 20050916
  2. TRACLEER [Suspect]
     Indication: PULMONARY HYPERTENSION
     Dosage: SEE IMAGE
     Route: 048
     Dates: start: 20050401
  3. PREDNISONE [Concomitant]
  4. CELLCEPT [Concomitant]
  5. BACTRIM [Concomitant]
  6. PANTOPRAZOLE SODIUM [Concomitant]
  7. ATENOLOL [Concomitant]
  8. REGLAN [Concomitant]
  9. FOSAMAX [Concomitant]

REACTIONS (3)
  - ANTIMITOCHONDRIAL ANTIBODY POSITIVE [None]
  - AUTOIMMUNE HEPATITIS [None]
  - SMOOTH MUSCLE ANTIBODY POSITIVE [None]
